FAERS Safety Report 16771699 (Version 1)
Quarter: 2019Q3

REPORT INFORMATION
  Report Type: Spontaneous
  Country: ES (occurrence: ES)
  Receive Date: 20190904
  Receipt Date: 20190904
  Transmission Date: 20191005
  Serious: Yes (Hospitalization, Disabling, Other)
  Sender: FDA-Public Use
  Company Number: ES-JNJFOC-20190830517

PATIENT
  Age: 70 Year
  Sex: Male

DRUGS (12)
  1. TOPIRAMATE. [Suspect]
     Active Substance: TOPIRAMATE
     Indication: AFFECTIVE DISORDER
     Route: 048
  2. TOPIRAMATE. [Suspect]
     Active Substance: TOPIRAMATE
     Route: 048
  3. FUROSEMIDE. [Concomitant]
     Active Substance: FUROSEMIDE
     Dosage: FOR MORE THAN ONE MONTH
  4. METFORMIN [Concomitant]
     Active Substance: METFORMIN HYDROCHLORIDE
     Dosage: FOR MORE THAN ONE MONTH
  5. PRIMIDONE. [Concomitant]
     Active Substance: PRIMIDONE
     Dosage: FOR MORE THAN ONE MONTH
  6. GLIMEPIRIDE. [Concomitant]
     Active Substance: GLIMEPIRIDE
     Dosage: FOR MORE THAN ONE MONTH
  7. HYDROCHLOROTHIAZIDE, EPROSARTAN [Concomitant]
     Dosage: FOR MORE THAN ONE MONTH
  8. CARBIDOPA AND LEVODOPA [Concomitant]
     Active Substance: CARBIDOPA\LEVODOPA
     Dosage: FOR MORE THAN ONE MONTH
  9. OXYBUTYNIN. [Concomitant]
     Active Substance: OXYBUTYNIN CHLORIDE
     Dosage: FOR MORE THAN ONE MONTH
  10. DOXAZOSIN [Concomitant]
     Active Substance: DOXAZOSIN MESYLATE
     Dosage: FOR MORE THAN ONE MONTH
  11. METHYLPREDNISOLONE. [Concomitant]
     Active Substance: METHYLPREDNISOLONE
  12. SITAGLIPTIN [Concomitant]
     Active Substance: SITAGLIPTIN
     Dosage: FOR MORE THAN ONE MONTH

REACTIONS (9)
  - Weight decreased [Unknown]
  - Hepatotoxicity [Recovered/Resolved]
  - Bedridden [Unknown]
  - Off label use [Unknown]
  - General physical health deterioration [Recovering/Resolving]
  - Cholestasis [Recovered/Resolved]
  - Liver injury [Recovered/Resolved]
  - Normochromic normocytic anaemia [Unknown]
  - Product use in unapproved indication [Unknown]
